FAERS Safety Report 8249271-4 (Version None)
Quarter: 2012Q2

REPORT INFORMATION
  Report Type: 
  Country: None (occurrence: None)
  Receive Date: 20120402
  Receipt Date: 20120321
  Transmission Date: 20120825
  Serious: Yes (Other)
  Sender: FDA-Public Use
  Company Number: BR-US-EMD SERONO, INC.-7121578

PATIENT
  Sex: Female

DRUGS (2)
  1. REBIF [Suspect]
     Indication: RELAPSING-REMITTING MULTIPLE SCLEROSIS
     Dates: start: 20020218
  2. POLARAMINE [Suspect]
     Indication: LACRIMATION INCREASED

REACTIONS (3)
  - HYPERTENSION [None]
  - RETINAL ARTERY STENOSIS [None]
  - LACRIMATION INCREASED [None]
